FAERS Safety Report 19509388 (Version 1)
Quarter: 2021Q3

REPORT INFORMATION
  Report Type: Spontaneous
  Country: JP (occurrence: JP)
  Receive Date: 20210709
  Receipt Date: 20210709
  Transmission Date: 20211014
  Serious: Yes (Hospitalization, Other)
  Sender: FDA-Public Use
  Company Number: JP-BYBET-JP-2021-YPL-00084

PATIENT

DRUGS (5)
  1. NOT APPLICABLE [Suspect]
     Active Substance: HYOSCYAMINE SULFATE
     Indication: OVARIAN HYPERSTIMULATION SYNDROME
  2. NOT APPLICABLE [Concomitant]
     Active Substance: HYOSCYAMINE SULFATE
     Indication: ASSISTED FERTILISATION
  3. NOT APPLICABLE [Suspect]
     Active Substance: HYOSCYAMINE SULFATE
     Indication: ASSISTED FERTILISATION
  4. LETROZOLE. [Suspect]
     Active Substance: LETROZOLE
     Indication: HER2 POSITIVE BREAST CANCER
     Route: 048
  5. NOT APPLICABLE [Concomitant]
     Active Substance: HYOSCYAMINE SULFATE
     Indication: ASSISTED FERTILISATION

REACTIONS (3)
  - Ovarian rupture [Recovering/Resolving]
  - Haemoperitoneum [Recovering/Resolving]
  - Ovarian haemorrhage [Recovering/Resolving]
